FAERS Safety Report 9069021 (Version 3)
Quarter: 2013Q1

REPORT INFORMATION
  Report Type: Spontaneous
  Country: US (occurrence: US)
  Receive Date: 20130215
  Receipt Date: 20130311
  Transmission Date: 20140127
  Serious: Yes (Other)
  Sender: FDA-Public Use
  Company Number: US-PFIZER INC-2013054820

PATIENT
  Age: 61 Year
  Sex: Female
  Weight: 72.56 kg

DRUGS (4)
  1. XALATAN [Suspect]
     Indication: GLAUCOMA
     Dosage: 1 GTT, 1X/DAY
     Route: 047
  2. LOTEMAX [Suspect]
     Indication: EYE IRRITATION
     Dosage: 0.5 %, 2X/DAY
     Dates: end: 20130207
  3. METFORMIN [Concomitant]
     Indication: DIABETES MELLITUS
     Dosage: 1000 MG, 1X/DAY
  4. TOPROL XL [Concomitant]
     Indication: HYPERTENSION
     Dosage: 50 MG, 1X/DAY

REACTIONS (4)
  - Glaucoma [Unknown]
  - Intraocular pressure increased [Unknown]
  - Eye irritation [Unknown]
  - Dry eye [Unknown]
